FAERS Safety Report 9770432 (Version 2)
Quarter: 2013Q4

REPORT INFORMATION
  Report Type: Spontaneous
  Country: DE (occurrence: DE)
  Receive Date: 20131218
  Receipt Date: 20131218
  Transmission Date: 20140711
  Serious: Yes (Hospitalization)
  Sender: FDA-Public Use
  Company Number: GXKR2013DE003767

PATIENT
  Age: 86 Year
  Sex: Male
  Weight: 75 kg

DRUGS (2)
  1. RAMIPRIL [Suspect]
     Indication: HYPERTENSION
     Dosage: 0.5 DF, QD (0.5-0-0)
     Route: 048
  2. GLAUPAX [Interacting]
     Indication: INTRAOCULAR PRESSURE INCREASED
     Dosage: 250 MG, ONCE/SINGLE

REACTIONS (1)
  - Dehydration [Recovered/Resolved]
